FAERS Safety Report 7936652-9 (Version None)
Quarter: 2011Q4

REPORT INFORMATION
  Report Type: 
  Country: None (occurrence: None)
  Receive Date: 20111123
  Receipt Date: 20111109
  Transmission Date: 20120403
  Serious: No
  Sender: FDA-Public Use
  Company Number: US-B.I. PHARMACEUTICALS,INC./RIDGEFIELD-2011-BP-23991BP

PATIENT
  Age: 68 Year
  Sex: Female
  Weight: 94.35 kg

DRUGS (13)
  1. ALBUTEROL [Concomitant]
  2. SINGULAIR [Concomitant]
     Dosage: 10 MG
  3. CELEBREX [Concomitant]
     Dosage: 200 MG
  4. TRILIPIX [Concomitant]
     Dosage: 245 MG
  5. MULTAQ [Concomitant]
     Dosage: 800 MG
  6. HYZAAR [Concomitant]
  7. ADVAIR DISKUS 100/50 [Concomitant]
  8. DILTIAZEM HCL [Concomitant]
     Dosage: 120 MG
  9. GLUCOTROL [Concomitant]
     Dosage: 5 MG
  10. PRADAXA [Suspect]
     Indication: ATRIAL FIBRILLATION
     Dosage: 300 MG
     Route: 048
     Dates: start: 20110620, end: 20110720
  11. BIOTIN [Concomitant]
     Dosage: 5 MG
  12. MULTI-VITAMIN [Concomitant]
  13. LOVAZA [Concomitant]
     Dosage: 1000 MG

REACTIONS (1)
  - ALOPECIA [None]
